FAERS Safety Report 9344950 (Version 1)
Quarter: 2013Q2

REPORT INFORMATION
  Report Type: Spontaneous
  Country: US (occurrence: US)
  Receive Date: 20130612
  Receipt Date: 20130612
  Transmission Date: 20140414
  Serious: No
  Sender: FDA-Public Use
  Company Number: US-009507513-1306USA004649

PATIENT
  Age: 71 Year
  Sex: Male

DRUGS (3)
  1. DULERA [Suspect]
     Indication: ASTHMA
     Dosage: 2 DF, BID (2 PUFFS LN THE MORNING AND 2 PUFFS IN THE EVENING)
     Route: 055
     Dates: start: 2011
  2. VENTOLIN (ALBUTEROL SULFATE) [Concomitant]
     Dosage: UNK
  3. QVAR [Concomitant]
     Dosage: UNK

REACTIONS (3)
  - Drug dose omission [Unknown]
  - Product quality issue [Unknown]
  - Wrong technique in drug usage process [Unknown]
